FAERS Safety Report 8559246-3 (Version None)
Quarter: 2012Q3

REPORT INFORMATION
  Report Type: 
  Country: None (occurrence: None)
  Receive Date: 20120802
  Receipt Date: 20120723
  Transmission Date: 20120928
  Serious: Yes (Hospitalization, Other)
  Sender: FDA-Public Use
  Company Number: US-009507513-1207USA010811

PATIENT

DRUGS (18)
  1. ZOCOR [Interacting]
     Dosage: 40 MG, QD
  2. DOXAZOSIN MESYLATE [Interacting]
     Dosage: 5 MG, UNK
  3. LISINOPRIL [Concomitant]
     Dosage: 20 MG, UNK
  4. LEVOTHYROXINE SODIUM [Concomitant]
     Dosage: 88 MG, UNK
  5. LACTULOSE [Concomitant]
     Dosage: 20 G, PRN
  6. ERGOCALCIFEROL [Concomitant]
     Dosage: 50000 DF, UNK
  7. FUROSEMIDE [Concomitant]
     Dosage: 40 MG, UNK
  8. FERROUS SULFATE TAB [Concomitant]
     Dosage: 325 MG, UNK
  9. GEMFIBROZIL [Interacting]
     Dosage: 60 MG, BID
  10. ZOCOR [Suspect]
     Dosage: 20 MG, QD
  11. HYDRALAZINE HCL [Concomitant]
     Dosage: 100 MG, UNK
  12. LANTUS [Concomitant]
     Dosage: 70 DF, UNK
  13. ASPIRIN [Concomitant]
     Dosage: 81 MG, UNK
  14. METOPROLOL TARTRATE [Concomitant]
     Dosage: 200 MG, UNK
  15. AMLODIPINE [Interacting]
     Dosage: 8 MG, UNK
  16. TRAVOPROST [Concomitant]
     Dosage: 40 MG, UNK
  17. PROSCAR [Interacting]
     Dosage: 5 MG, UNK
     Route: 048
  18. SODIUM POLYSTYRENE SULFONATE [Concomitant]
     Dosage: 30 MG, UNK

REACTIONS (21)
  - IRON DEFICIENCY ANAEMIA [None]
  - ALANINE AMINOTRANSFERASE INCREASED [None]
  - EROSIVE DUODENITIS [None]
  - BLOOD CREATININE INCREASED [None]
  - HAEMOGLOBIN DECREASED [None]
  - PAIN [None]
  - MYOPATHY TOXIC [None]
  - MYOTONIA [None]
  - MITRAL VALVE INCOMPETENCE [None]
  - DRUG INTERACTION [None]
  - RHABDOMYOLYSIS [None]
  - ABDOMINAL PAIN [None]
  - PARAESTHESIA [None]
  - IRRITABILITY [None]
  - TRICUSPID VALVE INCOMPETENCE [None]
  - RENAL FAILURE CHRONIC [None]
  - GAIT DISTURBANCE [None]
  - ILEUS [None]
  - ABDOMINAL DISTENSION [None]
  - MUSCULAR WEAKNESS [None]
  - ASPARTATE AMINOTRANSFERASE INCREASED [None]
